FAERS Safety Report 6788127-0 (Version None)
Quarter: 2010Q2

REPORT INFORMATION
  Report Type: 
  Country: None (occurrence: None)
  Receive Date: 20100623
  Receipt Date: 20080116
  Transmission Date: 20101027
  Serious: No
  Sender: FDA-Public Use
  Company Number: US-PFIZER INC-2008005643

PATIENT
  Sex: Female
  Weight: 56.818 kg

DRUGS (5)
  1. FLUCONAZOLE [Suspect]
     Indication: OESOPHAGEAL CANDIDIASIS
     Dates: start: 20070701, end: 20070801
  2. ANTIDIARRHOEAL MICROORGANISMS [Concomitant]
  3. GENERAL NUTRIENTS [Concomitant]
  4. ALL OTHER THERAPEUTIC PRODUCTS [Concomitant]
  5. ANTIBIOTICS [Concomitant]
     Dates: end: 20061201

REACTIONS (1)
  - ALOPECIA [None]
